FAERS Safety Report 5570568-0 (Version None)
Quarter: 2007Q4

REPORT INFORMATION
  Report Type: 
  Country: None (occurrence: None)
  Receive Date: 20071221
  Receipt Date: 20071211
  Transmission Date: 20080405
  Serious: Yes (Life-Threatening)
  Sender: FDA-Public Use
  Company Number: JP-BAYER-200710523BYL

PATIENT
  Age: 72 Year
  Sex: Male
  Weight: 40 kg

DRUGS (2)
  1. CIPROXAN-I.V. [Suspect]
     Indication: PYELONEPHRITIS
     Dosage: TOTAL DAILY DOSE: 300 MG  UNIT DOSE: 300 MG
     Route: 041
     Dates: start: 20070702, end: 20070706
  2. MAXIPIME [Concomitant]
     Dosage: TOTAL DAILY DOSE: 1 G  UNIT DOSE: 1 G
     Route: 041
     Dates: start: 20070628, end: 20070701

REACTIONS (1)
  - APLASTIC ANAEMIA [None]
